FAERS Safety Report 16357179 (Version 4)
Quarter: 2020Q1

REPORT INFORMATION
  Report Type: Spontaneous
  Country: US (occurrence: US)
  Receive Date: 20190527
  Receipt Date: 20200313
  Transmission Date: 20200409
  Serious: Yes (Other)
  Sender: FDA-Public Use
  Company Number: US-AMGEN-USASP2019081044

PATIENT
  Age: 75 Year
  Sex: Female

DRUGS (2)
  1. REPATHA [Suspect]
     Active Substance: EVOLOCUMAB
     Indication: BLOOD PRESSURE ABNORMAL
     Dosage: UNK
     Route: 065
  2. HUMIRA [Suspect]
     Active Substance: ADALIMUMAB
     Indication: CROHN^S DISEASE
     Dosage: UNK
     Route: 058

REACTIONS (25)
  - Frequent bowel movements [Not Recovered/Not Resolved]
  - Weight decreased [Unknown]
  - Exposure to contaminated device [Unknown]
  - Melanocytic naevus [Unknown]
  - Rash [Unknown]
  - Rash pruritic [Unknown]
  - Rash macular [Unknown]
  - Nephrolithiasis [Unknown]
  - Night sweats [Not Recovered/Not Resolved]
  - Hot flush [Unknown]
  - Bacterial infection [Unknown]
  - Drug ineffective [Unknown]
  - Pain [Not Recovered/Not Resolved]
  - Drug hypersensitivity [Not Recovered/Not Resolved]
  - Asthenia [Unknown]
  - Headache [Not Recovered/Not Resolved]
  - Fatigue [Not Recovered/Not Resolved]
  - Back pain [Unknown]
  - Onychoclasis [Not Recovered/Not Resolved]
  - Rash morbilliform [Unknown]
  - Diarrhoea [Not Recovered/Not Resolved]
  - Alopecia [Recovering/Resolving]
  - Oral herpes [Not Recovered/Not Resolved]
  - Skin disorder [Unknown]
  - Dry skin [Unknown]

NARRATIVE: CASE EVENT DATE: 20200128
